FAERS Safety Report 22138306 (Version 3)
Quarter: 2023Q2

REPORT INFORMATION
  Report Type: Spontaneous
  Country: US (occurrence: US)
  Receive Date: 20230326
  Receipt Date: 20230515
  Transmission Date: 20230721
  Serious: No
  Sender: FDA-Public Use
  Company Number: US-JNJFOC-20230352671

PATIENT
  Age: 43 Year
  Sex: Female

DRUGS (7)
  1. ULTRAM [Suspect]
     Active Substance: TRAMADOL HYDROCHLORIDE
     Indication: Pain
     Route: 048
     Dates: start: 202210, end: 202210
  2. ROSUVASTATIN CALCIUM [Concomitant]
     Active Substance: ROSUVASTATIN CALCIUM
  3. DIGOXIN [Concomitant]
     Active Substance: DIGOXIN
  4. OPSUMIT [Concomitant]
     Active Substance: MACITENTAN
  5. ADIPINE [NIFEDIPINE] [Concomitant]
  6. LORATADINE [Concomitant]
     Active Substance: LORATADINE
  7. LIDOCAINE [Concomitant]
     Active Substance: LIDOCAINE

REACTIONS (1)
  - Drug ineffective [Unknown]
